FAERS Safety Report 8228664-5 (Version None)
Quarter: 2012Q1

REPORT INFORMATION
  Report Type: 
  Country: None (occurrence: None)
  Receive Date: 20120322
  Receipt Date: 20110722
  Transmission Date: 20120608
  Serious: No
  Sender: FDA-Public Use
  Company Number: US-BRISTOL-MYERS SQUIBB COMPANY-15474935

PATIENT
  Age: 29 Year
  Sex: Female

DRUGS (2)
  1. ERBITUX [Suspect]
     Indication: COLON CANCER METASTATIC
  2. IRINOTECAN HCL [Concomitant]
     Indication: COLON CANCER METASTATIC

REACTIONS (6)
  - SENSORY DISTURBANCE [None]
  - LIP SWELLING [None]
  - PERIORBITAL OEDEMA [None]
  - MIGRAINE [None]
  - RASH [None]
  - VOMITING [None]
